FAERS Safety Report 16039252 (Version 1)
Quarter: 2019Q1

REPORT INFORMATION
  Report Type: Other
  Country: IL (occurrence: IL)
  Receive Date: 20190306
  Receipt Date: 20190306
  Transmission Date: 20190418
  Serious: Yes (Hospitalization)
  Sender: FDA-Public Use
  Company Number: IL-CELLTRION INC.-2019IL019109

PATIENT

DRUGS (1)
  1. REMSIMA [Suspect]
     Active Substance: INFLIXIMAB
     Indication: PRODUCT USED FOR UNKNOWN INDICATION
     Dosage: 300 MG AT A RATE OF 125 MG PER HOUR (250 ML FOR TWO HOURS)
     Dates: start: 20190127

REACTIONS (4)
  - Dyspnoea [Unknown]
  - Restlessness [Unknown]
  - Wheezing [Unknown]
  - Cough [Unknown]
